FAERS Safety Report 8333986-3 (Version None)
Quarter: 2012Q1

REPORT INFORMATION
  Report Type: 
  Country: None (occurrence: None)
  Receive Date: 20120328
  Receipt Date: 20110102
  Transmission Date: 20120608
  Serious: Yes (Other)
  Sender: FDA-Public Use
  Company Number: PHHY2011US01165

PATIENT

DRUGS (1)
  1. VALTURNA [Suspect]
     Dosage: 300/320 MG, 150/160 MG

REACTIONS (1)
  - BLOOD PRESSURE DECREASED [None]
